FAERS Safety Report 15967643 (Version 1)
Quarter: 2019Q1

REPORT INFORMATION
  Report Type: Spontaneous
  Country: AE (occurrence: AE)
  Receive Date: 20190215
  Receipt Date: 20190215
  Transmission Date: 20190418
  Serious: Yes (Life-Threatening, Disabling, Other)
  Sender: FDA-Public Use
  Company Number: None

PATIENT
  Age: 29 Year
  Sex: Male
  Weight: 80 kg

DRUGS (1)
  1. SYMMETREL, AMANTADINE. [Suspect]
     Active Substance: AMANTADINE
     Indication: SELF-MEDICATION
     Dosage: ?          QUANTITY:90 TABLET(S);?
     Route: 048
     Dates: start: 20190104, end: 20190201

REACTIONS (10)
  - Dysarthria [None]
  - Agitation [None]
  - Speech disorder [None]
  - Muscle twitching [None]
  - Rebound effect [None]
  - Fatigue [None]
  - Depressed mood [None]
  - Dysgraphia [None]
  - Tremor [None]
  - Euphoric mood [None]

NARRATIVE: CASE EVENT DATE: 20190104
